FAERS Safety Report 6706246-1 (Version None)
Quarter: 2010Q2

REPORT INFORMATION
  Report Type: 
  Country: None (occurrence: None)
  Receive Date: 20100503
  Receipt Date: 20100428
  Transmission Date: 20101027
  Serious: Yes (Hospitalization)
  Sender: FDA-Public Use
  Company Number: FR-PFIZER INC-2010010081

PATIENT
  Age: 53 Year
  Sex: Female

DRUGS (13)
  1. CELEBREX [Suspect]
     Dosage: 1 DF, 2X/DAY
     Route: 048
  2. REMICADE [Suspect]
     Indication: ANKYLOSING SPONDYLITIS
     Dosage: 300 MG EVERY 6 WEEKS
     Route: 042
     Dates: start: 20091106
  3. LYRICA [Concomitant]
     Dosage: 75 MG, 2X/DAY
     Route: 048
  4. TRIMEBUTINE [Concomitant]
     Dosage: 1 DF, 2X/DAY
     Route: 048
  5. FOSAMAX [Concomitant]
     Dosage: 70 MG, WEEKLY
     Route: 048
  6. VERAPAMIL [Concomitant]
     Dosage: 120 MG, 2X/DAY
     Route: 048
  7. LASIX [Concomitant]
     Dosage: 20 MG, 1X/DAY
     Route: 048
  8. LEVOTHYROX [Concomitant]
     Dosage: 125 MG, 1X/DAY
     Route: 048
  9. XYZAL [Concomitant]
     Dosage: UNK
     Route: 048
  10. TOPALGIC [Concomitant]
     Dosage: 200 MG, 2X/DAY
     Route: 048
  11. SULFARLEM [Concomitant]
     Dosage: UNK
     Route: 048
  12. NEBILOX [Concomitant]
     Dosage: UNK
     Route: 048
  13. NEXIUM [Concomitant]
     Dosage: 20 MG, UNK
     Route: 048

REACTIONS (3)
  - CHEST PAIN [None]
  - PARAESTHESIA [None]
  - TRANSIENT ISCHAEMIC ATTACK [None]
